FAERS Safety Report 24209550 (Version 1)
Quarter: 2024Q3

REPORT INFORMATION
  Report Type: Spontaneous
  Country: PL (occurrence: PL)
  Receive Date: 20240814
  Receipt Date: 20240814
  Transmission Date: 20241017
  Serious: Yes (Life-Threatening, Hospitalization, Other)
  Sender: VELOXIS PHARMACEUTICALS
  Company Number: PL-ARISTO PHARMA-CEFU202407221

PATIENT
  Age: 57 Year
  Sex: Female

DRUGS (15)
  1. TACROLIMUS [Suspect]
     Active Substance: TACROLIMUS
     Indication: Immunosuppressant drug therapy
     Dosage: UNK
  2. TAZOBACTAM [Suspect]
     Active Substance: TAZOBACTAM
     Indication: Product used for unknown indication
     Dosage: UNK
  3. MYCOPHENOLATE MOFETIL [Suspect]
     Active Substance: MYCOPHENOLATE MOFETIL
     Indication: Immunosuppressant drug therapy
     Dosage: UNK
  4. METRONIDAZOLE [Suspect]
     Active Substance: METRONIDAZOLE
     Indication: Bullous erysipelas
     Dosage: 500 MILLIGRAM, 3 DAY
     Route: 042
  5. METRONIDAZOLE [Suspect]
     Active Substance: METRONIDAZOLE
     Indication: Escherichia infection
     Dosage: 500 MILLIGRAM, 3 DAY
     Route: 042
  6. IMIPENEM [Suspect]
     Active Substance: IMIPENEM
     Indication: Escherichia infection
     Dosage: UNK
  7. IMIPENEM [Suspect]
     Active Substance: IMIPENEM
     Indication: Bullous erysipelas
  8. PIPERACILLIN [Suspect]
     Active Substance: PIPERACILLIN
     Indication: Escherichia infection
     Dosage: UNK
  9. PIPERACILLIN [Suspect]
     Active Substance: PIPERACILLIN
     Indication: Bullous erysipelas
  10. CEFUROXIME AXETIL [Suspect]
     Active Substance: CEFUROXIME AXETIL
     Indication: Bullous erysipelas
     Dosage: UNK
  11. CEFUROXIME AXETIL [Suspect]
     Active Substance: CEFUROXIME AXETIL
     Indication: Escherichia infection
  12. VANCOMYCIN [Concomitant]
     Active Substance: VANCOMYCIN
     Indication: Clostridium difficile colitis
     Dosage: 180 MILLIGRAM, 0.5 DAY
     Route: 048
  13. TETANUS TOXOID ADSORBED (VACCINE) [Concomitant]
     Active Substance: CLOSTRIDIUM TETANI TOXOID ANTIGEN (FORMALDEHYDE INACTIVATED)
     Indication: Prophylaxis
     Dosage: UNK
  14. UNSPECIFIED INGREDIENT [Concomitant]
     Active Substance: UNSPECIFIED INGREDIENT
     Indication: Product used for unknown indication
     Dosage: UNK
  15. AZATHIOPRINE [Concomitant]
     Active Substance: AZATHIOPRINE
     Indication: Clostridium difficile colitis
     Dosage: UNK

REACTIONS (4)
  - Drug ineffective [Unknown]
  - Clostridium difficile colitis [Recovered/Resolved]
  - Bullous erysipelas [Recovered/Resolved]
  - Septic shock [Recovered/Resolved]
